FAERS Safety Report 24336836 (Version 8)
Quarter: 2025Q1

REPORT INFORMATION
  Report Type: Spontaneous
  Country: US (occurrence: US)
  Receive Date: 20240919
  Receipt Date: 20250203
  Transmission Date: 20250409
  Serious: Yes (Hospitalization)
  Sender: BIOGEN
  Company Number: US-BIOGEN-2024BI01282290

PATIENT
  Sex: Female

DRUGS (2)
  1. TYSABRI [Suspect]
     Active Substance: NATALIZUMAB
     Indication: Multiple sclerosis
     Route: 050
     Dates: start: 20240301, end: 20240705
  2. TYSABRI [Suspect]
     Active Substance: NATALIZUMAB
     Route: 050
     Dates: start: 20141217, end: 20221209

REACTIONS (7)
  - Wound infection staphylococcal [Unknown]
  - Bacterial infection [Unknown]
  - Sepsis [Unknown]
  - Limb injury [Unknown]
  - Tremor [Unknown]
  - Pain [Unknown]
  - Mobility decreased [Unknown]
